FAERS Safety Report 5201398-7 (Version None)
Quarter: 2007Q1

REPORT INFORMATION
  Report Type: 
  Country: None (occurrence: None)
  Receive Date: 20070108
  Receipt Date: 20061227
  Transmission Date: 20070707
  Serious: Yes (Death, Other)
  Sender: FDA-Public Use
  Company Number: FR-PFIZER INC-2006152743

PATIENT
  Age: 36 Year
  Sex: Female

DRUGS (6)
  1. DALACINE [Suspect]
     Dosage: TEXT:6 DF
     Route: 048
  2. TRIATEC [Suspect]
     Dosage: DAILY DOSE:5MG
     Route: 048
  3. OFLOCET [Suspect]
     Dosage: TEXT:2DF
     Route: 048
  4. INSULIN [Suspect]
     Route: 058
  5. XALATAN [Suspect]
     Route: 047
  6. COSOPT [Suspect]
     Route: 047

REACTIONS (4)
  - ABORTION [None]
  - ABORTION SPONTANEOUS [None]
  - DRUG EXPOSURE DURING PREGNANCY [None]
  - PREGNANCY [None]
